FAERS Safety Report 8496501-X (Version None)
Quarter: 2012Q2

REPORT INFORMATION
  Report Type: 
  Country: None (occurrence: None)
  Receive Date: 20120629
  Receipt Date: 20120619
  Transmission Date: 20120825
  Serious: Yes (Hospitalization)
  Sender: FDA-Public Use
  Company Number: 2012AP001692

PATIENT
  Age: 72 Year
  Sex: Male

DRUGS (2)
  1. CITALOPRAM HYDROBROMIDE [Suspect]
     Indication: DEPRESSION
  2. TAMSULOSIN HCL [Concomitant]

REACTIONS (8)
  - FALL [None]
  - CEREBRAL ATROPHY [None]
  - IRRITABILITY [None]
  - INAPPROPRIATE ANTIDIURETIC HORMONE SECRETION [None]
  - DISORIENTATION [None]
  - GRAND MAL CONVULSION [None]
  - AFFECT LABILITY [None]
  - GAIT DISTURBANCE [None]
